FAERS Safety Report 6112767-5 (Version None)
Quarter: 2009Q1

REPORT INFORMATION
  Report Type: 
  Country: None (occurrence: None)
  Receive Date: 20090312
  Receipt Date: 20090309
  Transmission Date: 20090719
  Serious: Yes (Hospitalization)
  Sender: FDA-Public Use
  Company Number: US-ABBOTT-09P-163-0559897-00

PATIENT
  Sex: Female
  Weight: 53.572 kg

DRUGS (12)
  1. HUMIRA [Suspect]
     Indication: CROHN'S DISEASE
     Route: 058
     Dates: start: 20070821
  2. HUMIRA [Suspect]
     Route: 058
  3. LEVAQUIN [Suspect]
     Indication: RASH
     Dates: start: 20080623, end: 20080623
  4. LEVAQUIN [Suspect]
     Indication: URINARY TRACT INFECTION
  5. VANCOMYCIN [Suspect]
     Indication: DRUG USE FOR UNKNOWN INDICATION
     Dates: start: 20080601, end: 20080601
  6. OS-CAL [Concomitant]
     Indication: MINERAL SUPPLEMENTATION
  7. YASMIN [Concomitant]
     Indication: CONTRACEPTION
  8. MULTI-VITAMIN [Concomitant]
     Indication: VITAMIN SUPPLEMENTATION
  9. PNEUMOCOCCAL VACCINE [Concomitant]
     Indication: DRUG USE FOR UNKNOWN INDICATION
     Dates: start: 20080301
  10. MENINGOCOCCAL VACCINE [Concomitant]
     Indication: DRUG USE FOR UNKNOWN INDICATION
     Dates: start: 20080301
  11. VITAMIN B-12 [Concomitant]
     Indication: VITAMIN SUPPLEMENTATION
  12. VITAMIN D [Concomitant]
     Indication: DRUG USE FOR UNKNOWN INDICATION

REACTIONS (17)
  - ADVERSE EVENT [None]
  - CONTUSION [None]
  - DIARRHOEA [None]
  - ERYTHEMA [None]
  - FALL [None]
  - GASTROOESOPHAGEAL REFLUX DISEASE [None]
  - HYPOPHAGIA [None]
  - INCORRECT DOSE ADMINISTERED [None]
  - LIVER FUNCTION TEST ABNORMAL [None]
  - OROPHARYNGEAL PAIN [None]
  - RASH [None]
  - SYNCOPE [None]
  - TOOTH DISORDER [None]
  - URINARY TRACT INFECTION [None]
  - UVULITIS [None]
  - VIRAL INFECTION [None]
  - VOMITING [None]
